FAERS Safety Report 13839813 (Version 1)
Quarter: 2017Q3

REPORT INFORMATION
  Report Type: Spontaneous
  Country: US (occurrence: US)
  Receive Date: 20170805
  Receipt Date: 20170805
  Transmission Date: 20171127
  Serious: No
  Sender: FDA-Public Use
  Company Number: None

PATIENT
  Age: 20 Year
  Sex: Male

DRUGS (5)
  1. DRONABINOL. [Concomitant]
     Active Substance: DRONABINOL
  2. FILGRASTIM [Concomitant]
     Active Substance: FILGRASTIM
  3. ALLOPURINOL. [Suspect]
     Active Substance: ALLOPURINOL
     Indication: PROPHYLAXIS
     Route: 048
     Dates: start: 20160729, end: 20160810
  4. ONDANSETRON [Concomitant]
     Active Substance: ONDANSETRON
  5. TRAMADOL. [Concomitant]
     Active Substance: TRAMADOL

REACTIONS (4)
  - Rash papular [None]
  - Vomiting [None]
  - Nausea [None]
  - Rash pruritic [None]

NARRATIVE: CASE EVENT DATE: 20160810
